FAERS Safety Report 9733504 (Version 2)
Quarter: 2013Q4

REPORT INFORMATION
  Report Type: Not Available
  Country: FR (occurrence: FR)
  Receive Date: 20131205
  Receipt Date: 20131205
  Transmission Date: 20140711
  Serious: Yes (Life-Threatening)
  Sender: FDA-Public Use
  Company Number: FR-BEH-2013038231

PATIENT
  Sex: Male
  Weight: 54 kg

DRUGS (10)
  1. PRIVIGEN [Suspect]
     Indication: HYPOGAMMAGLOBULINAEMIA
     Route: 042
     Dates: start: 20130820, end: 20130820
  2. CLAIRYG [Suspect]
     Indication: HYPOGAMMAGLOBULINAEMIA
     Route: 042
     Dates: start: 20130827, end: 20130827
  3. STEROID [Concomitant]
  4. CELLCEPT [Concomitant]
  5. NEORAL [Concomitant]
  6. ATG [Concomitant]
  7. IGIV [Concomitant]
  8. PLASMATIC EXCHANGES [Concomitant]
  9. RITUXIMAB [Concomitant]
  10. PROGRAF [Concomitant]

REACTIONS (4)
  - Anaphylactic shock [Recovered/Resolved]
  - Malaise [Recovered/Resolved]
  - Hypotension [Recovered/Resolved]
  - Rash [Recovered/Resolved]
